FAERS Safety Report 7646426-4 (Version None)
Quarter: 2011Q3

REPORT INFORMATION
  Report Type: 
  Country: None (occurrence: None)
  Receive Date: 20110801
  Receipt Date: 20110727
  Transmission Date: 20111222
  Serious: Yes (Hospitalization, Other)
  Sender: FDA-Public Use
  Company Number: SE-CELGENEUS-150-21880-11071577

PATIENT
  Sex: Female
  Weight: 92 kg

DRUGS (4)
  1. REVLIMID [Suspect]
     Dosage: 10 MILLIGRAM
     Route: 048
     Dates: start: 20110718, end: 20110727
  2. INNOHEP [Concomitant]
     Indication: PROPHYLAXIS
     Dosage: 4500 IU (INTERNATIONAL UNIT)
     Route: 058
     Dates: start: 20110417
  3. REVLIMID [Suspect]
     Indication: MULTIPLE MYELOMA
     Dosage: 10 MILLIGRAM
     Route: 048
     Dates: start: 20100722
  4. DEXAMETHASONE [Suspect]
     Indication: MULTIPLE MYELOMA
     Dosage: 2.8571 MILLIGRAM
     Route: 048
     Dates: start: 20100412, end: 20110727

REACTIONS (3)
  - COLON CANCER [None]
  - PYREXIA [None]
  - GASTROINTESTINAL HAEMORRHAGE [None]
